FAERS Safety Report 9624653 (Version 2)
Quarter: 2013Q4

REPORT INFORMATION
  Report Type: Report from Study
  Country: DE (occurrence: DE)
  Receive Date: 20131015
  Receipt Date: 20131227
  Transmission Date: 20140711
  Serious: Yes (Death, Hospitalization)
  Sender: FDA-Public Use
  Company Number: DE-ABBVIE-13P-062-1156838-00

PATIENT
  Age: 82 Year
  Sex: Female

DRUGS (20)
  1. ZEMPLAR [Suspect]
     Indication: RENAL FAILURE CHRONIC
     Dosage: DOSAGE CHANGED
     Route: 040
     Dates: start: 20120420, end: 20121130
  2. ZEMPLAR [Suspect]
     Dosage: DOSAGE CHANGED
     Route: 048
     Dates: start: 20121201
  3. MIMPARA [Concomitant]
     Indication: HYPERPARATHYROIDISM SECONDARY
     Route: 048
     Dates: start: 20101029
  4. FUROSEMID [Concomitant]
     Indication: PRODUCT USED FOR UNKNOWN INDICATION
     Route: 048
     Dates: start: 20110406
  5. BISOHEXAL [Concomitant]
     Indication: ARRHYTHMIA
     Dosage: ONCE EVERY 0.5 DOSE
     Dates: start: 20101201
  6. ESOMEPRAZOLE [Concomitant]
     Indication: GASTROOESOPHAGEAL REFLUX DISEASE
     Route: 048
     Dates: start: 20110722
  7. ASS [Concomitant]
     Indication: CORONARY ARTERY DISEASE
     Dates: start: 20060816
  8. ASS [Concomitant]
     Dates: start: 20110725
  9. DIGIMERCK [Concomitant]
     Indication: TRANSIENT ISCHAEMIC ATTACK
     Dosage: ONLY 4 DAYS/WEEKLY
     Dates: start: 20110112
  10. DIGIMERCK [Concomitant]
     Indication: ATRIAL FIBRILLATION
  11. XIPAMID [Concomitant]
     Indication: RENAL DISORDER
     Dates: start: 20110411
  12. TILIDIN COMP. [Concomitant]
     Indication: ANALGESIC THERAPY
     Dates: start: 20080130
  13. RADEDORM [Concomitant]
     Indication: INSOMNIA
     Dosage: AS NEEDED
     Dates: start: 20090722
  14. CELEBREX [Concomitant]
     Indication: ANALGESIC THERAPY
     Dates: start: 20120102
  15. NOVALGIN [Concomitant]
     Indication: ARTHRALGIA
     Dates: start: 20121128
  16. NOVALGIN [Concomitant]
     Indication: HERPES ZOSTER
     Dates: start: 201212
  17. NOVALGIN [Concomitant]
     Indication: PAIN
  18. FERRLECIT [Concomitant]
     Indication: ANAEMIA
     Route: 042
     Dates: start: 20090917
  19. L-CARNITIN [Concomitant]
     Indication: MUSCLE SPASMS
     Route: 042
     Dates: start: 20120416
  20. CLEXANE [Concomitant]
     Indication: THROMBOSIS PROPHYLAXIS

REACTIONS (8)
  - Sudden death [Fatal]
  - Fall [Unknown]
  - Joint swelling [Unknown]
  - Ascites [Not Recovered/Not Resolved]
  - Haematoma [Not Recovered/Not Resolved]
  - Pain [Not Recovered/Not Resolved]
  - General physical health deterioration [Not Recovered/Not Resolved]
  - Herpes zoster [Not Recovered/Not Resolved]
